FAERS Safety Report 15536353 (Version 1)
Quarter: 2018Q4

REPORT INFORMATION
  Report Type: Spontaneous
  Country: ES (occurrence: ES)
  Receive Date: 20181022
  Receipt Date: 20181022
  Transmission Date: 20190205
  Serious: Yes (Other)
  Sender: FDA-Public Use
  Company Number: ES-SAKK-2018SA286867AA

PATIENT
  Sex: Female

DRUGS (4)
  1. FOLFIRI [Suspect]
     Active Substance: FLUOROURACIL\IRINOTECAN\LEUCOVORIN
     Indication: HEPATIC CANCER
     Dosage: UNK UNK, UNK
     Dates: start: 2018
  2. FOLFIRI [Suspect]
     Active Substance: FLUOROURACIL\IRINOTECAN\LEUCOVORIN
     Dosage: UNK
  3. ZALTRAP [Suspect]
     Active Substance: ZIV-AFLIBERCEPT
     Indication: HEPATIC CANCER
     Dosage: UNK UNK, UNK
     Route: 065
     Dates: start: 2018
  4. ZALTRAP [Suspect]
     Active Substance: ZIV-AFLIBERCEPT
     Dosage: UNK

REACTIONS (2)
  - Gastric haemorrhage [Unknown]
  - Oesophageal varices haemorrhage [Unknown]
